FAERS Safety Report 8882402 (Version 1)
Quarter: 2012Q4

REPORT INFORMATION
  Report Type: 
  Country: US (occurrence: US)
  Receive Date: 20121103
  Receipt Date: 20121103
  Transmission Date: 20130627
  Serious: No
  Sender: FDA-Public Use
  Company Number: US-009507513-1211USA000627

PATIENT
  Sex: Female

DRUGS (1)
  1. IMPLANON [Suspect]
     Indication: CONTRACEPTIVE IMPLANT
     Dosage: UNK
     Dates: start: 20120118

REACTIONS (2)
  - Dysmenorrhoea [Unknown]
  - Metrorrhagia [Unknown]
